FAERS Safety Report 8382898-8 (Version None)
Quarter: 2012Q2

REPORT INFORMATION
  Report Type: 
  Country: None (occurrence: None)
  Receive Date: 20120522
  Receipt Date: 20120515
  Transmission Date: 20120825
  Serious: Yes (Hospitalization, Other)
  Sender: FDA-Public Use
  Company Number: 217201

PATIENT
  Age: 76 Year
  Sex: Male

DRUGS (2)
  1. INNOHEP [Suspect]
     Indication: PHLEBITIS
  2. SUTENT [Suspect]
     Indication: PROSTATE CANCER METASTATIC

REACTIONS (4)
  - ANAEMIA [None]
  - OESOPHAGITIS ULCERATIVE [None]
  - HAEMATEMESIS [None]
  - OFF LABEL USE [None]
